FAERS Safety Report 4614433-1 (Version None)
Quarter: 2005Q1

REPORT INFORMATION
  Report Type: 
  Country: None (occurrence: None)
  Receive Date: 20050315
  Receipt Date: 20050307
  Transmission Date: 20050727
  Serious: Yes (Hospitalization)
  Sender: FDA-Public Use
  Company Number: US014851

PATIENT
  Age: 46 Year
  Sex: Male
  Weight: 61.2356 kg

DRUGS (2)
  1. PROVIGIL [Suspect]
     Indication: SOMNOLENCE
     Dosage: 400 MG QMON ORAL
     Route: 048
  2. PROVIGIL [Suspect]
     Indication: SOMNOLENCE
     Dosage: 100 MG QPM ORAL
     Route: 048

REACTIONS (5)
  - CARDIAC ARREST [None]
  - DIZZINESS [None]
  - SINUS ARRHYTHMIA [None]
  - SINUS BRADYCARDIA [None]
  - SYNCOPE [None]
